FAERS Safety Report 6724579-X (Version None)
Quarter: 2010Q2

REPORT INFORMATION
  Report Type: 
  Country: None (occurrence: None)
  Receive Date: 20100513
  Receipt Date: 20100506
  Transmission Date: 20101027
  Serious: Yes (Hospitalization)
  Sender: FDA-Public Use
  Company Number: PHHO2009FR13371

PATIENT
  Sex: Female
  Weight: 85 kg

DRUGS (6)
  1. RAD001C [Suspect]
     Indication: RENAL CELL CARCINOMA
     Dosage: 5 MG/DAY
     Route: 048
     Dates: start: 20070611
  2. AFINITOR [Suspect]
     Indication: RENAL CANCER METASTATIC
     Dosage: CODE NOT BROKEN
     Route: 048
     Dates: start: 20080229
  3. BLINDED NO TREATMENT RECEIVED NOMED [Suspect]
     Indication: RENAL CANCER METASTATIC
     Dosage: CODE NOT BROKEN
     Route: 048
     Dates: start: 20080229
  4. BLINDED PLACEBO COMP-PLA+ [Suspect]
     Indication: RENAL CANCER METASTATIC
     Dosage: CODE NOT BROKEN
     Route: 048
     Dates: start: 20080229
  5. ZELITREX [Concomitant]
     Indication: LUNG INFECTION
  6. BACTRIM [Concomitant]
     Indication: LUNG INFECTION

REACTIONS (3)
  - LUNG LOBECTOMY [None]
  - LUNG NEOPLASM [None]
  - METASTASES TO LUNG [None]
